FAERS Safety Report 19645709 (Version 1)
Quarter: 2021Q3

REPORT INFORMATION
  Report Type: Spontaneous
  Country: US (occurrence: US)
  Receive Date: 20210801
  Receipt Date: 20210801
  Transmission Date: 20211014
  Serious: Yes (Life-Threatening, Hospitalization)
  Sender: FDA-Public Use
  Company Number: None

PATIENT
  Age: 24 Year
  Sex: Female
  Weight: 49.7 kg

DRUGS (4)
  1. ERTAPENEM. [Suspect]
     Active Substance: ERTAPENEM SODIUM
     Indication: PYELONEPHRITIS
     Dosage: ?          OTHER FREQUENCY:ONCE;?
     Route: 040
  2. HALOPERIDOL. [Concomitant]
     Active Substance: HALOPERIDOL
     Dates: start: 20210530, end: 20210530
  3. KETOROLAC [Concomitant]
     Active Substance: KETOROLAC TROMETHAMINE
     Dates: start: 20210530, end: 20210530
  4. MORPHINE [Concomitant]
     Active Substance: MORPHINE
     Dates: start: 20210530, end: 20210531

REACTIONS (2)
  - Hypotension [None]
  - Angioedema [None]

NARRATIVE: CASE EVENT DATE: 20210530
